FAERS Safety Report 10391170 (Version 1)
Quarter: 2014Q3

REPORT INFORMATION
  Report Type: Spontaneous
  Country: US (occurrence: US)
  Receive Date: 20140818
  Receipt Date: 20140818
  Transmission Date: 20150326
  Serious: Yes (Hospitalization, Other)
  Sender: FDA-Public Use
  Company Number: US-009507513-1408USA008334

PATIENT
  Sex: Female
  Weight: 81.18 kg

DRUGS (1)
  1. NUVARING [Suspect]
     Active Substance: ETHINYL ESTRADIOL\ETONOGESTREL
     Indication: CONTRACEPTION
     Dosage: USE AS DIRECTED EVERY 4 WEEKS
     Route: 067
     Dates: start: 20130917, end: 20131022

REACTIONS (4)
  - Attention deficit/hyperactivity disorder [Unknown]
  - Cerebral infarction [Unknown]
  - Hypertension [Unknown]
  - Vertebral artery dissection [Unknown]

NARRATIVE: CASE EVENT DATE: 201311
